FAERS Safety Report 4326699-6 (Version None)
Quarter: 2004Q1

REPORT INFORMATION
  Report Type: 
  Country: None (occurrence: None)
  Receive Date: 20040325
  Receipt Date: 20040128
  Transmission Date: 20041129
  Serious: Yes (Hospitalization, Other)
  Sender: FDA-Public Use
  Company Number: USA031049827

PATIENT
  Age: 61 Year
  Sex: Female
  Weight: 70 kg

DRUGS (8)
  1. EVISTA [Suspect]
     Indication: OSTEOPOROSIS
     Dates: start: 20010601
  2. FORTEO [Suspect]
     Indication: OSTEOPOROSIS
     Dates: start: 20030915, end: 20040128
  3. CALCIUM [Concomitant]
  4. VITAMIN B COMPLEX CAP [Concomitant]
  5. VITAMIN C [Concomitant]
  6. FOSAMAX [Concomitant]
  7. LEXAPRO [Concomitant]
  8. VITAMIN D [Concomitant]

REACTIONS (7)
  - INJECTION SITE BURNING [None]
  - INJECTION SITE STINGING [None]
  - MUSCLE CRAMP [None]
  - RASH PRURITIC [None]
  - SPINAL COMPRESSION FRACTURE [None]
  - WEIGHT INCREASED [None]
  - WEIGHT LOSS POOR [None]
